FAERS Safety Report 25747599 (Version 4)
Quarter: 2025Q4

REPORT INFORMATION
  Report Type: Spontaneous
  Country: GB (occurrence: GB)
  Receive Date: 20250901
  Receipt Date: 20251130
  Transmission Date: 20260117
  Serious: Yes (Hospitalization, Other)
  Sender: IPSEN BIOPHARMACEUTICALS, INC.
  Company Number: GB-ADVANZ PHARMA-202404003714

PATIENT
  Sex: Male

DRUGS (6)
  1. LANREOTIDE [Suspect]
     Active Substance: LANREOTIDE
     Indication: Acromegaly
     Dosage: 120 MG, EVERY 28 DAYS (DEEP SUBCUTANEOUS)
     Route: 058
     Dates: start: 20240425
  2. LANREOTIDE [Suspect]
     Active Substance: LANREOTIDE
     Indication: Gigantism
     Dosage: 120 MG, EVERY 28 DAYS (DEEP SUBCUTANEOUS)
     Route: 058
     Dates: start: 20250522
  3. LANREOTIDE [Suspect]
     Active Substance: LANREOTIDE
     Indication: Neuroendocrine tumour
     Dosage: 120 MG, EVERY 28 DAYS (DEEP SUBCUTANEOUS)
     Route: 058
  4. LANREOTIDE [Suspect]
     Active Substance: LANREOTIDE
     Dosage: 120 MG, EVERY 28 DAYS (DEEP SUBCUTANEOUS)
     Route: 058
  5. LANREOTIDE [Suspect]
     Active Substance: LANREOTIDE
     Dosage: 120 MG, EVERY 28 DAYS (DEEP SUBCUTANEOUS)
     Route: 058
     Dates: start: 20251016
  6. LANREOTIDE [Suspect]
     Active Substance: LANREOTIDE
     Dosage: 120 MG, EVERY 28 DAYS (DEEP SUBCUTANEOUS) (L UOQ BUTTOCK)
     Route: 058

REACTIONS (37)
  - Large intestine polyp [Unknown]
  - Colonoscopy [Unknown]
  - Seizure [Unknown]
  - Haematochezia [Unknown]
  - Brain neoplasm [Unknown]
  - Injection site mass [Unknown]
  - Injection site bruising [Unknown]
  - Hypotension [Recovered/Resolved]
  - Depressed mood [Recovering/Resolving]
  - Influenza [Recovered/Resolved]
  - Muscle spasms [Not Recovered/Not Resolved]
  - Anxiety [Unknown]
  - Blood pressure increased [Unknown]
  - Malaise [Recovering/Resolving]
  - Injection site haemorrhage [Recovered/Resolved]
  - Dehydration [Unknown]
  - Nausea [Recovered/Resolved]
  - Diarrhoea [Recovered/Resolved]
  - Abdominal pain [Unknown]
  - Abdominal pain upper [Unknown]
  - Weight decreased [Not Recovered/Not Resolved]
  - Diarrhoea [Recovering/Resolving]
  - Diarrhoea [Not Recovered/Not Resolved]
  - Headache [Unknown]
  - Abdominal distension [Not Recovered/Not Resolved]
  - Injection site pain [Unknown]
  - Abdominal discomfort [Recovered/Resolved]
  - Abdominal pain upper [Recovered/Resolved]
  - Injection site pain [Unknown]
  - Injection site pain [Unknown]
  - Product supply issue [Unknown]
  - Circumstance or information capable of leading to device use error [Unknown]
  - Device issue [Unknown]
  - Needle issue [Unknown]
  - Product use issue [Unknown]
  - Treatment delayed [Unknown]
  - Treatment delayed [Unknown]

NARRATIVE: CASE EVENT DATE: 20240101
